FAERS Safety Report 19302342 (Version 2)
Quarter: 2021Q2

REPORT INFORMATION
  Report Type: Report from Study
  Country: FR (occurrence: FR)
  Receive Date: 20210525
  Receipt Date: 20210601
  Transmission Date: 20210717
  Serious: Yes (Hospitalization)
  Sender: FDA-Public Use
  Company Number: FR-TAKEDA-2020TUS048142

PATIENT
  Age: 76 Year
  Sex: Female

DRUGS (11)
  1. TEDUGLUTIDE [Suspect]
     Active Substance: TEDUGLUTIDE
     Indication: SHORT-BOWEL SYNDROME
     Dosage: 1.2 MILLIGRAM (0.02 MG/KG), 3 DOSES PER WEEK
     Route: 065
     Dates: start: 20170418, end: 20170701
  2. VITAMIN A [RETINOL] [Concomitant]
     Active Substance: RETINOL
     Indication: PROPHYLAXIS
  3. TEDUGLUTIDE [Suspect]
     Active Substance: TEDUGLUTIDE
     Indication: SHORT-BOWEL SYNDROME
     Dosage: 1.2 MILLIGRAM (0.02 MG/KG), 3 DOSES PER WEEK
     Route: 065
     Dates: start: 20170418, end: 20170701
  4. TEDUGLUTIDE [Suspect]
     Active Substance: TEDUGLUTIDE
     Indication: SHORT-BOWEL SYNDROME
     Dosage: 1.2 MILLIGRAM (0.02 MG/KG), 3 DOSES PER WEEK
     Route: 065
     Dates: start: 20170418, end: 20170701
  5. FUROSEMIDE. [Concomitant]
     Active Substance: FUROSEMIDE
     Dosage: 999.0UNK
     Route: 065
     Dates: start: 202012, end: 20201224
  6. TAUROLOCK [Concomitant]
     Active Substance: TAUROLIDINE
     Dosage: 1.00 UNK, AFTER EACH INJECTION
     Route: 065
  7. FUROSEMIDE. [Concomitant]
     Active Substance: FUROSEMIDE
     Indication: PLEURAL EFFUSION
     Dosage: 999.0UNK
     Route: 065
     Dates: start: 202012, end: 202012
  8. TEDUGLUTIDE [Suspect]
     Active Substance: TEDUGLUTIDE
     Indication: SHORT-BOWEL SYNDROME
     Dosage: 1.2 MILLIGRAM (0.02 MG/KG), 3 DOSES PER WEEK
     Route: 065
     Dates: start: 20170418, end: 20170701
  9. TAUROLOCK [Concomitant]
     Active Substance: TAUROLIDINE
     Indication: PROPHYLAXIS
     Dosage: UNK
     Route: 065
  10. IMODIUM [Concomitant]
     Active Substance: LOPERAMIDE HYDROCHLORIDE
     Indication: PROPHYLAXIS
     Dosage: 6 MILLIGRAM, TID
     Route: 048
     Dates: start: 20180226
  11. ELIQUIS [Concomitant]
     Active Substance: APIXABAN
     Indication: ANTICOAGULANT THERAPY
     Dosage: 2.50 MILLIGRAM, BID
     Route: 048
     Dates: start: 20160226

REACTIONS (3)
  - Nausea [Recovered/Resolved]
  - Abdominal pain [Recovered/Resolved]
  - Pleural effusion [Recovered/Resolved]

NARRATIVE: CASE EVENT DATE: 201704
